FAERS Safety Report 6195783-7 (Version None)
Quarter: 2009Q2

REPORT INFORMATION
  Report Type: 
  Country: None (occurrence: None)
  Receive Date: 20090520
  Receipt Date: 20071008
  Transmission Date: 20091009
  Serious: Yes (Other)
  Sender: FDA-Public Use
  Company Number: US-ASTRAZENECA-2006UW22656

PATIENT
  Age: 21434 Day
  Sex: Female
  Weight: 98.9 kg

DRUGS (27)
  1. SEROQUEL [Suspect]
     Indication: DEPRESSION
     Route: 048
     Dates: start: 20010101
  2. SEROQUEL [Suspect]
     Indication: BIPOLAR DISORDER
     Route: 048
     Dates: start: 20010101
  3. SEROQUEL [Suspect]
     Dosage: 50-300 MG
     Route: 048
     Dates: start: 20010805
  4. SEROQUEL [Suspect]
     Dosage: 50-300 MG
     Route: 048
     Dates: start: 20010805
  5. ABILIFY [Concomitant]
     Route: 065
  6. TRILAFON [Concomitant]
     Route: 065
  7. ORUDIS [Concomitant]
     Indication: OSTEOARTHRITIS
     Route: 065
     Dates: start: 20050602
  8. GLUCOVANCE [Concomitant]
     Indication: DIABETES MELLITUS
     Dosage: STRENGTH 1.25/250 MG TWO TIMES A DAY
     Route: 065
  9. ADVAIR HFA [Concomitant]
     Route: 065
  10. SINGULAIR [Concomitant]
     Route: 065
  11. SYNTHROID [Concomitant]
     Route: 065
  12. TYLENOL [Concomitant]
     Indication: PAIN
     Route: 065
  13. WELLBUTRIN [Concomitant]
     Route: 065
  14. GABAPENTIN [Concomitant]
     Route: 065
  15. LEXAPRO [Concomitant]
     Dosage: STRENGTH 10-20 MG DAILY
     Route: 065
     Dates: start: 20050608
  16. LISINOPRIL AND HYDROCHLOROTHIAZIDE [Concomitant]
     Dosage: STRENGTH 10/12.5 MG DAILY
     Route: 048
  17. PAXIL [Concomitant]
     Route: 065
  18. AMBIEN [Concomitant]
     Dosage: STRENGTH 10-20 MG  DAILY
     Route: 065
  19. AMITRIPTLINE HYDROCHLORIDE TAB [Concomitant]
     Route: 065
  20. CYTOMEL [Concomitant]
     Dosage: 5 MCG B.I.D, T.I.D
     Route: 065
  21. LUNESTA [Concomitant]
     Dosage: 1-2 MG
     Route: 065
  22. BUSPAR [Concomitant]
     Route: 065
  23. AVANDIA [Concomitant]
     Route: 065
  24. IBUPROFEN [Concomitant]
     Route: 065
  25. GLIPIZIDE [Concomitant]
     Route: 065
  26. FLEXERIL [Concomitant]
     Indication: PAIN
     Route: 065
  27. MIRTAZAPINE [Concomitant]
     Dosage: 30-45 MG DAILY
     Route: 065

REACTIONS (7)
  - CHEST PAIN [None]
  - CHRONIC OBSTRUCTIVE PULMONARY DISEASE [None]
  - DIABETES MELLITUS [None]
  - DIABETIC KETOACIDOSIS [None]
  - DIABETIC NEUROPATHY [None]
  - TENOSYNOVITIS STENOSANS [None]
  - VAGINAL HAEMORRHAGE [None]
